FAERS Safety Report 5702874-0 (Version None)
Quarter: 2008Q2

REPORT INFORMATION
  Report Type: 
  Country: None (occurrence: None)
  Receive Date: 20080411
  Receipt Date: 20080401
  Transmission Date: 20081010
  Serious: Yes (Disabling)
  Sender: FDA-Public Use
  Company Number: US-MERCK-0804USA00533

PATIENT
  Age: 62 Year
  Sex: Female
  Weight: 57 kg

DRUGS (8)
  1. VYTORIN [Suspect]
     Indication: HYPERLIPIDAEMIA
     Route: 048
  2. ACTONEL [Concomitant]
     Route: 048
     Dates: start: 20051003
  3. CANASA [Concomitant]
     Route: 054
     Dates: start: 20080125
  4. EPIPEN [Concomitant]
     Route: 051
     Dates: start: 20060925
  5. HYDROCORTISONE ACETATE [Concomitant]
     Route: 054
     Dates: start: 20071128
  6. NASACORT [Concomitant]
     Dates: start: 20080110
  7. PREMARIN [Concomitant]
     Route: 061
     Dates: start: 20060925
  8. ZYRTEC [Concomitant]
     Route: 048
     Dates: start: 20060915

REACTIONS (2)
  - MUSCLE CONTRACTIONS INVOLUNTARY [None]
  - MUSCLE SPASMS [None]
